FAERS Safety Report 9776211 (Version 2)
Quarter: 2013Q4

REPORT INFORMATION
  Report Type: Other
  Country: GB (occurrence: GB)
  Receive Date: 20131220
  Receipt Date: 20131220
  Transmission Date: 20140711
  Serious: Yes (Death, Other)
  Sender: FDA-Public Use
  Company Number: GB-TAKEDA-THQ2013A02180

PATIENT
  Sex: 0

DRUGS (6)
  1. ZOTON [Suspect]
     Indication: PRODUCT USED FOR UNKNOWN INDICATION
     Dosage: UNK
  2. MORPHINE SULFATE [Suspect]
     Indication: PRODUCT USED FOR UNKNOWN INDICATION
     Dosage: UNK
     Route: 048
  3. FERINJECT [Suspect]
     Indication: IRON DEFICIENCY ANAEMIA
     Dosage: UNK
     Route: 042
     Dates: start: 20121127, end: 20121127
  4. FERINJECT [Suspect]
     Dosage: UNK
     Route: 042
     Dates: start: 20130109, end: 20130109
  5. FERINJECT [Suspect]
     Dosage: 1000 UNK
     Dates: start: 20130116, end: 20130116
  6. DIHYDROCODEINE [Suspect]
     Indication: PRODUCT USED FOR UNKNOWN INDICATION

REACTIONS (5)
  - Thrombocytopenia [Fatal]
  - Aplasia [Fatal]
  - Headache [Unknown]
  - Dizziness [Unknown]
  - Nausea [Unknown]
